FAERS Safety Report 21989206 (Version 1)
Quarter: 2023Q1

REPORT INFORMATION
  Report Type: Spontaneous
  Country: AU (occurrence: AU)
  Receive Date: 20230214
  Receipt Date: 20230214
  Transmission Date: 20230417
  Serious: Yes (Other)
  Sender: FDA-Public Use
  Company Number: AU-PADAGIS-2023PAD00139

PATIENT

DRUGS (9)
  1. CYCLOSPORINE [Suspect]
     Active Substance: CYCLOSPORINE
     Indication: Toxic epidermal necrolysis
     Dosage: 140 MG
     Route: 042
  2. CYCLOSPORINE [Suspect]
     Active Substance: CYCLOSPORINE
     Dosage: UNK, TAPPERED DOSE
     Route: 042
  3. HYDROCORTISONE [Suspect]
     Active Substance: HYDROCORTISONE
     Indication: Toxic epidermal necrolysis
     Dosage: 200 MG
     Route: 042
  4. ETANERCEPT [Suspect]
     Active Substance: ETANERCEPT
     Indication: Toxic epidermal necrolysis
     Dosage: 50 MG STAT
     Route: 058
  5. GRANULOCYTE COLONY-STIMULATING FACTOR NOS [Suspect]
     Active Substance: GRANULOCYTE COLONY-STIMULATING FACTOR NOS
     Indication: Toxic epidermal necrolysis
     Dosage: 480 MCG
     Route: 058
  6. PREDNISOLONE [Concomitant]
     Active Substance: PREDNISOLONE
     Indication: Ocular discomfort
     Dosage: 50 MG PRIOR TO ADMISSION
     Route: 048
  7. PREDNISOLONE [Concomitant]
     Active Substance: PREDNISOLONE
     Dosage: 25 MG
     Route: 048
  8. PREDNISOLONE [Concomitant]
     Active Substance: PREDNISOLONE
     Dosage: UNK, TAPERED DOSE
     Route: 065
  9. LAMOTRIGINE [Concomitant]
     Active Substance: LAMOTRIGINE
     Indication: Product used for unknown indication
     Dosage: UNK
     Route: 065

REACTIONS (4)
  - Symblepharon [Unknown]
  - Pneumonia aspiration [Unknown]
  - Bacteraemia [Unknown]
  - Product use in unapproved indication [Unknown]
